FAERS Safety Report 8181007-8 (Version None)
Quarter: 2012Q1

REPORT INFORMATION
  Report Type: 
  Country: None (occurrence: None)
  Receive Date: 20120229
  Receipt Date: 20120221
  Transmission Date: 20120608
  Serious: Yes (Hospitalization, Congenital Anomaly, Other)
  Sender: FDA-Public Use
  Company Number: GER/GER/12/0023108

PATIENT
  Age: 0 Year
  Sex: Female
  Weight: 2.85 kg

DRUGS (6)
  1. TRIMIPRAMINE MALEATE [Suspect]
     Indication: PRODUCT USED FOR UNKNOWN INDICATION
     Dosage: 400 MG, 1 IN 1 D, TRANSPLACENTAL
     Route: 064
     Dates: end: 20100901
  2. LORAZEPAM [Suspect]
     Indication: PRODUCT USED FOR UNKNOWN INDICATION
     Dosage: 8 MG, AS REQUIRED, TRANSPLACENTAL
     Route: 064
     Dates: end: 20100601
  3. VENLAFAXINE HCL [Suspect]
     Indication: PRODUCT USED FOR UNKNOWN INDICATION
     Dosage: 150 MG, 1 IN 1 D, TRANSPLACENTAL
     Route: 064
     Dates: end: 20100601
  4. FOLSAURE (FOLIC ACID) [Concomitant]
  5. RISPERDAL [Suspect]
     Indication: PRODUCT USED FOR UNKNOWN INDICATION
     Dosage: 6 MG, 1 IN 1 D, TRANSPLACENTAL
     Route: 064
     Dates: end: 20100601
  6. LAMOTRIGINE [Suspect]
     Indication: PRODUCT USED FOR UNKNOWN INDICATION
     Dosage: 200 MG, 1 IN 1 D, TRANSPLACENTAL
     Route: 064

REACTIONS (7)
  - VENTRICULAR SEPTAL DEFECT [None]
  - CAESAREAN SECTION [None]
  - MATERNAL DRUGS AFFECTING FOETUS [None]
  - ATRIAL SEPTAL DEFECT [None]
  - COARCTATION OF THE AORTA [None]
  - PARACHUTE MITRAL VALVE [None]
  - PATENT DUCTUS ARTERIOSUS [None]
